FAERS Safety Report 8578934-6 (Version None)
Quarter: 2012Q3

REPORT INFORMATION
  Report Type: 
  Country: None (occurrence: None)
  Receive Date: 20120808
  Receipt Date: 20120807
  Transmission Date: 20120928
  Serious: Yes (Hospitalization, Other)
  Sender: FDA-Public Use
  Company Number: US-PFIZER INC-2012191984

PATIENT
  Sex: Female

DRUGS (1)
  1. CHANTIX [Suspect]
     Dosage: UNK
     Dates: start: 20090601

REACTIONS (8)
  - DEPRESSION [None]
  - ANXIETY [None]
  - BRAIN INJURY [None]
  - AMNESIA [None]
  - DEAFNESS [None]
  - EXECUTIVE DYSFUNCTION [None]
  - SUICIDE ATTEMPT [None]
  - ABNORMAL BEHAVIOUR [None]
